FAERS Safety Report 17846704 (Version 1)
Quarter: 2020Q2

REPORT INFORMATION
  Report Type: Spontaneous
  Country: JP (occurrence: JP)
  Receive Date: 20200601
  Receipt Date: 20200601
  Transmission Date: 20200714
  Serious: Yes (Hospitalization, Other)
  Sender: FDA-Public Use
  Company Number: JP-VISTAPHARM, INC.-VER202005-001020

PATIENT
  Age: 24 Year
  Sex: Female

DRUGS (4)
  1. SALICYLAMIDE [Suspect]
     Active Substance: SALICYLAMIDE
     Indication: NASOPHARYNGITIS
     Dosage: UNKNOWN
     Route: 065
  2. PROMETHAZINE [Concomitant]
     Active Substance: PROMETHAZINE HYDROCHLORIDE
     Indication: NASOPHARYNGITIS
     Dosage: UNKNOWN
     Route: 065
  3. HYDROCODONE AND ACETAMINOPHEN [Suspect]
     Active Substance: ACETAMINOPHEN\HYDROCODONE
     Indication: NASOPHARYNGITIS
     Dosage: UNKNOWN
  4. CAFFEINE. [Suspect]
     Active Substance: CAFFEINE
     Indication: NASOPHARYNGITIS
     Dosage: UNKNOWN
     Route: 065

REACTIONS (1)
  - Anaphylactic shock [Recovered/Resolved]
